FAERS Safety Report 7917034-2 (Version None)
Quarter: 2011Q4

REPORT INFORMATION
  Report Type: 
  Country: None (occurrence: None)
  Receive Date: 20111116
  Receipt Date: 20111110
  Transmission Date: 20120403
  Serious: Yes (Death, Hospitalization)
  Sender: FDA-Public Use
  Company Number: GB-SANOFI-AVENTIS-2011SA064220

PATIENT
  Age: 83 Year
  Sex: Male
  Weight: 96 kg

DRUGS (15)
  1. CABAZITAXEL [Suspect]
     Route: 042
     Dates: start: 20110914, end: 20110914
  2. ENOXAPARIN SODIUM [Suspect]
     Indication: PROPHYLAXIS
  3. ZOLADEX [Concomitant]
  4. AMLODIPINE [Concomitant]
  5. IBUPROFEN [Concomitant]
  6. PIPERACILLIN AND TAZOBACTAM [Concomitant]
  7. OMEPRAZOLE [Concomitant]
  8. CABAZITAXEL [Suspect]
     Indication: PROSTATE CANCER
     Route: 042
     Dates: start: 20110824, end: 20110824
  9. LOPERAMIDE HCL [Concomitant]
  10. PREDNISOLONE [Suspect]
     Indication: PROSTATE CANCER
     Route: 048
     Dates: start: 20110824, end: 20110928
  11. ASPIRIN [Concomitant]
  12. LOSARTAN [Concomitant]
  13. OXYBUTYNIN [Concomitant]
  14. TAMSULOSIN HCL [Concomitant]
  15. GENTAMICIN [Concomitant]

REACTIONS (2)
  - GASTROINTESTINAL HAEMORRHAGE [None]
  - NEUTROPENIC INFECTION [None]
